FAERS Safety Report 10268654 (Version 1)
Quarter: 2014Q2

REPORT INFORMATION
  Report Type: Spontaneous
  Country: IT (occurrence: IT)
  Receive Date: 20140630
  Receipt Date: 20140630
  Transmission Date: 20141212
  Serious: Yes (Other)
  Sender: FDA-Public Use
  Company Number: IT-TEVA-490939ISR

PATIENT
  Age: 75 Year
  Sex: Male

DRUGS (1)
  1. CLOPIDOGREL [Suspect]
     Indication: EMBOLIC STROKE
     Dosage: 75 MILLIGRAM DAILY;
     Route: 048
     Dates: start: 20140401, end: 20140530

REACTIONS (3)
  - Diabetes mellitus [Unknown]
  - Transient ischaemic attack [Unknown]
  - Hypertension [Unknown]
